FAERS Safety Report 23997320 (Version 1)
Quarter: 2024Q2

REPORT INFORMATION
  Report Type: Spontaneous
  Country: US (occurrence: US)
  Receive Date: 20240621
  Receipt Date: 20240621
  Transmission Date: 20240716
  Serious: No
  Sender: FDA-Public Use
  Company Number: US-BRAEBURN-US-BRA-24-000214

PATIENT
  Sex: Female

DRUGS (3)
  1. BRIXADI [Suspect]
     Active Substance: BUPRENORPHINE
     Indication: Product used for unknown indication
     Dosage: 16 MILLIGRAM, WEEKLY
     Route: 065
  2. BRIXADI [Suspect]
     Active Substance: BUPRENORPHINE
     Dosage: 64 MILLIGRAM
     Route: 065
  3. BRIXADI [Suspect]
     Active Substance: BUPRENORPHINE
     Dosage: 96 MILLIGRAM
     Route: 065

REACTIONS (8)
  - Sleep disorder [Unknown]
  - Bruxism [Unknown]
  - Nervousness [Unknown]
  - Drug dependence [Unknown]
  - Injection site pain [Unknown]
  - Injection site bruising [Unknown]
  - Dizziness [Unknown]
  - Product administration error [Unknown]
